FAERS Safety Report 20884983 (Version 1)
Quarter: 2022Q2

REPORT INFORMATION
  Report Type: Spontaneous
  Country: US (occurrence: US)
  Receive Date: 20220527
  Receipt Date: 20220527
  Transmission Date: 20220721
  Serious: No
  Sender: FDA-Public Use
  Company Number: US-ELI_LILLY_AND_COMPANY-US202205000789

PATIENT
  Sex: Female

DRUGS (1)
  1. OLUMIANT [Suspect]
     Active Substance: BARICITINIB
     Indication: Product used for unknown indication
     Dosage: 2 MG, DAILY
     Route: 065
     Dates: start: 20220105

REACTIONS (3)
  - Dizziness [Unknown]
  - Hypertension [Unknown]
  - Fall [Unknown]

NARRATIVE: CASE EVENT DATE: 20220425
